FAERS Safety Report 20210486 (Version 2)
Quarter: 2021Q4

REPORT INFORMATION
  Report Type: Spontaneous
  Country: NO (occurrence: NO)
  Receive Date: 20211221
  Receipt Date: 20211222
  Transmission Date: 20220303
  Serious: Yes (Death, Hospitalization, Other)
  Sender: FDA-Public Use
  Company Number: None

PATIENT
  Age: 78 Year
  Sex: Male

DRUGS (6)
  1. MOXONIDINE [Concomitant]
     Active Substance: MOXONIDINE
     Indication: Hypertension
     Dosage: 0,2MG X 1 - IKKE NEVNT I NOTAT FRA 2016, MEN HISTORIKK I KJERNEJOURNAL TILBAKE TIL 2018
     Route: 048
     Dates: end: 20211129
  2. HYDROCHLOROTHIAZIDE\IRBESARTAN [Concomitant]
     Active Substance: HYDROCHLOROTHIAZIDE\IRBESARTAN
     Indication: Hypertension
     Dosage: 300/12,5MG X 1 - UKJENT START - NEVNT I NOTAT FRA 2016 ?2 DOSAGE FORM
     Route: 048
     Dates: end: 20211129
  3. JARDIANCE [Suspect]
     Active Substance: EMPAGLIFLOZIN
     Indication: Diabetes mellitus
     Route: 048
     Dates: start: 2016, end: 20211128
  4. NIFENOVA [Concomitant]
     Indication: Hypertension
     Dosage: 60MG X 1 - NEVNT I NOTAT TILBAKE TIL 2016
     Route: 048
     Dates: start: 2016, end: 20211129
  5. METFORMIN [Concomitant]
     Active Substance: METFORMIN HYDROCHLORIDE
     Indication: Diabetes mellitus
     Dosage: 2 X 2  RESEPT, MEN SANNSYNLIGVIS LAVERE OVER TID SISTE TRE, DOSERING/ETTERLEVELSE
     Route: 048
     Dates: end: 20211129
  6. ZONAT [DOXYLAMINE SUCCINATE] [Concomitant]
     Indication: Insomnia
     Dosage: 12,5 MG, AS NECESSARY 1-2 TABL KVELD VED BEHOV
     Route: 048
     Dates: start: 20211118, end: 20211129

REACTIONS (2)
  - Diabetic ketoacidosis [Fatal]
  - Diarrhoea [Fatal]

NARRATIVE: CASE EVENT DATE: 20211128
